FAERS Safety Report 9317791 (Version 1)
Quarter: 2013Q2

REPORT INFORMATION
  Report Type: Spontaneous
  Country: US (occurrence: US)
  Receive Date: 20130530
  Receipt Date: 20130530
  Transmission Date: 20140414
  Serious: No
  Sender: FDA-Public Use
  Company Number: US-GLAXOSMITHKLINE-A0983077A

PATIENT
  Age: 61 Year
  Sex: Female

DRUGS (2)
  1. VENTOLIN HFA [Suspect]
     Indication: PRODUCT USED FOR UNKNOWN INDICATION
     Dosage: 10PUFF UNKNOWN
     Route: 065
     Dates: start: 20120425
  2. FLOVENT [Suspect]
     Indication: PRODUCT USED FOR UNKNOWN INDICATION
     Dosage: 3PUFF UNKNOWN
     Route: 055
     Dates: start: 20120425

REACTIONS (2)
  - Drug administration error [Unknown]
  - Product quality issue [Unknown]
